FAERS Safety Report 19786855 (Version 1)
Quarter: 2021Q3

REPORT INFORMATION
  Report Type: Spontaneous
  Country: US (occurrence: US)
  Receive Date: 20210903
  Receipt Date: 20210903
  Transmission Date: 20211014
  Serious: Yes (Hospitalization, Other)
  Sender: FDA-Public Use
  Company Number: US-TORRENT-00011222

PATIENT
  Age: 88 Year
  Sex: Female

DRUGS (1)
  1. CLOPIDOGREL [Suspect]
     Active Substance: CLOPIDOGREL BISULFATE
     Indication: CAROTID ARTERY STENT INSERTION
     Dosage: UNKNOWN
     Dates: start: 202006, end: 202012

REACTIONS (2)
  - Pulmonary alveolar haemorrhage [Recovering/Resolving]
  - Diffuse alveolar damage [Recovering/Resolving]

NARRATIVE: CASE EVENT DATE: 2020
